FAERS Safety Report 6434355-3 (Version None)
Quarter: 2009Q4

REPORT INFORMATION
  Report Type: 
  Country: None (occurrence: None)
  Receive Date: 20091110
  Receipt Date: 20081022
  Transmission Date: 20100525
  Serious: No
  Sender: FDA-Public Use
  Company Number: US-ASTRAZENECA-2009UW15863

PATIENT
  Age: 75 Year
  Sex: Female

DRUGS (3)
  1. PRILOSEC OTC [Suspect]
     Indication: GASTROOESOPHAGEAL REFLUX DISEASE
     Dosage: 1 TABLET, 1 /DAY FOR 7 DAYS
     Route: 048
     Dates: start: 20081014, end: 20081021
  2. INDERAL [Concomitant]
     Dosage: UNKNOWN
  3. DIAZEPAM [Concomitant]
     Dosage: UNKNOWN

REACTIONS (3)
  - LABELLED DRUG-DRUG INTERACTION MEDICATION ERROR [None]
  - MUSCULAR WEAKNESS [None]
  - PAIN [None]
